FAERS Safety Report 16230593 (Version 1)
Quarter: 2019Q2

REPORT INFORMATION
  Report Type: Spontaneous
  Country: US (occurrence: US)
  Receive Date: 20190423
  Receipt Date: 20190423
  Transmission Date: 20190711
  Serious: No
  Sender: FDA-Public Use
  Company Number: US-BIOGEN-2018BI00626758

PATIENT
  Sex: Female

DRUGS (5)
  1. FAMOTODINE [Concomitant]
     Route: 050
     Dates: start: 20180112
  2. AVONEX [Suspect]
     Active Substance: INTERFERON BETA-1A
     Indication: MULTIPLE SCLEROSIS
     Route: 050
     Dates: start: 20170124
  3. TIMOLOL. [Concomitant]
     Active Substance: TIMOLOL
     Dosage: TIMOLOL GEL SOL 0.5%OP
     Route: 050
  4. AVONEX [Suspect]
     Active Substance: INTERFERON BETA-1A
     Route: 030
  5. TIMOLOL. [Concomitant]
     Active Substance: TIMOLOL
     Dosage: TIMOLOL GEL SOL 0.5%OP
     Route: 050

REACTIONS (3)
  - Stress [Unknown]
  - Pain [Unknown]
  - Fatigue [Unknown]
